FAERS Safety Report 8996929 (Version 1)
Quarter: 2012Q4

REPORT INFORMATION
  Report Type: Spontaneous
  Country: AE (occurrence: None)
  Receive Date: 20121221
  Receipt Date: 20121221
  Transmission Date: 20130627
  Serious: Yes (Hospitalization)
  Sender: FDA-Public Use
  Company Number: USA/UAE/12/0027097

PATIENT
  Age: 28 Year
  Sex: Male

DRUGS (1)
  1. FLUOXETINE (FLUOXETINE) [Suspect]
     Indication: DEPRESSION

REACTIONS (15)
  - Suicide attempt [None]
  - Intentional overdose [None]
  - Coma [None]
  - Respiratory rate increased [None]
  - Tachycardia [None]
  - Hypotension [None]
  - Oxygen saturation decreased [None]
  - Acidosis [None]
  - Leukocytosis [None]
  - Blood creatinine increased [None]
  - Autonomic nervous system imbalance [None]
  - Muscle rigidity [None]
  - Dyskinesia [None]
  - Gait apraxia [None]
  - Cognitive disorder [None]
